FAERS Safety Report 5783920-5 (Version None)
Quarter: 2008Q2

REPORT INFORMATION
  Report Type: 
  Country: None (occurrence: None)
  Receive Date: 20080605
  Receipt Date: 20080326
  Transmission Date: 20081010
  Serious: No
  Sender: FDA-Public Use
  Company Number: A0717571A

PATIENT
  Age: 50 Year
  Sex: Female

DRUGS (1)
  1. ALLI [Suspect]
     Dates: start: 20080321

REACTIONS (3)
  - ABDOMINAL PAIN [None]
  - MENORRHAGIA [None]
  - TONGUE DISCOLOURATION [None]
